FAERS Safety Report 5852083-X (Version None)
Quarter: 2008Q3

REPORT INFORMATION
  Report Type: 
  Country: None (occurrence: None)
  Receive Date: 20080819
  Receipt Date: 20080806
  Transmission Date: 20090109
  Serious: Yes (Other)
  Sender: FDA-Public Use
  Company Number: 8033506

PATIENT
  Age: 64 Year
  Sex: Male
  Weight: 131.36 kg

DRUGS (16)
  1. XYZAL [Suspect]
     Indication: SEASONAL ALLERGY
     Dosage: 5 MG 1/D PO
     Route: 048
     Dates: start: 20080512, end: 20080519
  2. XYZAL [Suspect]
     Indication: SEASONAL ALLERGY
     Dosage: 5 MG 1/D PO
     Route: 048
     Dates: start: 20080610, end: 20080613
  3. ZYRTEC [Suspect]
     Indication: SEASONAL ALLERGY
     Dosage: PO
     Route: 048
     Dates: start: 20080525, end: 20080608
  4. CLARITIN [Suspect]
     Indication: SEASONAL ALLERGY
     Dosage: PO
     Route: 048
  5. COUMADIN [Concomitant]
  6. COUMADIN [Concomitant]
  7. COUMADIN [Concomitant]
  8. COUMADIN [Concomitant]
  9. COUMADIN [Concomitant]
  10. CIALIS [Concomitant]
  11. ASPIRIN [Concomitant]
  12. COZAAR [Concomitant]
  13. LIPITOR [Concomitant]
  14. TOPRAL [Concomitant]
  15. NORVASC [Concomitant]
  16. SULTOPRIDE [Concomitant]

REACTIONS (3)
  - INTERNATIONAL NORMALISED RATIO INCREASED [None]
  - NO THERAPEUTIC RESPONSE [None]
  - PROTHROMBIN TIME PROLONGED [None]
